FAERS Safety Report 20325333 (Version 1)
Quarter: 2022Q1

REPORT INFORMATION
  Report Type: Other
  Country: CN (occurrence: None)
  Receive Date: 20220112
  Receipt Date: 20220112
  Transmission Date: 20220423
  Serious: Yes (Other)
  Sender: FDA-Public Use
  Company Number: CN-ROCHE-2280888

PATIENT
  Age: 47 Year
  Sex: Male
  Weight: 52 kg

DRUGS (2)
  1. AVASTIN [Suspect]
     Active Substance: BEVACIZUMAB
     Indication: Colorectal cancer
     Route: 041
     Dates: start: 20151121, end: 20190213
  2. AVASTIN [Suspect]
     Active Substance: BEVACIZUMAB
     Route: 041
     Dates: start: 20190321

REACTIONS (3)
  - Liver function test increased [Unknown]
  - Full blood count increased [Unknown]
  - Renal hydrocele [Unknown]

NARRATIVE: CASE EVENT DATE: 20190213
